FAERS Safety Report 18820170 (Version 1)
Quarter: 2021Q1

REPORT INFORMATION
  Report Type: Spontaneous
  Country: ET (occurrence: ET)
  Receive Date: 20210202
  Receipt Date: 20210202
  Transmission Date: 20210419
  Serious: Yes (Other)
  Sender: FDA-Public Use
  Company Number: ET-SUN PHARMACEUTICAL INDUSTRIES LTD-2021R1-278433

PATIENT
  Age: 25 Year
  Sex: Female

DRUGS (4)
  1. ACETAZOLAMIDE. [Suspect]
     Active Substance: ACETAZOLAMIDE
     Indication: ANTIBIOTIC THERAPY
     Dosage: UNK (250 MILLIGRAM)
     Route: 048
  2. TROPICAMIDE. [Suspect]
     Active Substance: TROPICAMIDE
     Indication: ANTIBIOTIC THERAPY
     Dosage: UNK, 0.3 PERCENT
     Route: 047
  3. GENTAMICIN. [Suspect]
     Active Substance: GENTAMICIN
     Indication: ANTIBIOTIC THERAPY
     Dosage: UNK
     Route: 047
  4. VANCOMYCIN [Suspect]
     Active Substance: VANCOMYCIN
     Indication: ANTIBIOTIC THERAPY
     Dosage: UNK
     Route: 047

REACTIONS (4)
  - Drug ineffective [Unknown]
  - Klebsiella infection [Recovering/Resolving]
  - Keratitis [Recovering/Resolving]
  - Drug resistance [Unknown]
